FAERS Safety Report 10468785 (Version 7)
Quarter: 2016Q3

REPORT INFORMATION
  Report Type: Spontaneous
  Country: GB (occurrence: GB)
  Receive Date: 20140923
  Receipt Date: 20160812
  Transmission Date: 20161109
  Serious: Yes (Hospitalization, Other)
  Sender: FDA-Public Use
  Company Number: GB-ROCHE-1464353

PATIENT
  Sex: Female

DRUGS (4)
  1. HERCEPTIN [Suspect]
     Active Substance: TRASTUZUMAB
     Indication: PRODUCT USED FOR UNKNOWN INDICATION
     Route: 058
  2. CAPECITABINE. [Suspect]
     Active Substance: CAPECITABINE
     Indication: PRODUCT USED FOR UNKNOWN INDICATION
     Route: 048
  3. HERCEPTIN [Suspect]
     Active Substance: TRASTUZUMAB
     Indication: PRODUCT USED FOR UNKNOWN INDICATION
     Route: 042
  4. XGEVA [Suspect]
     Active Substance: DENOSUMAB
     Indication: PRODUCT USED FOR UNKNOWN INDICATION
     Route: 065

REACTIONS (32)
  - Metastasis [Unknown]
  - Malaise [Unknown]
  - Musculoskeletal chest pain [Unknown]
  - Plantar fasciitis [Unknown]
  - Weight increased [Unknown]
  - Blood sodium decreased [Recovered/Resolved]
  - Tension headache [Unknown]
  - Mucosal dryness [Unknown]
  - Generalised tonic-clonic seizure [Unknown]
  - Hypertension [Unknown]
  - Headache [Unknown]
  - Pain [Not Recovered/Not Resolved]
  - Diarrhoea [Not Recovered/Not Resolved]
  - Nasopharyngitis [Recovering/Resolving]
  - Memory impairment [Unknown]
  - Ear pain [Unknown]
  - Visual acuity reduced [Not Recovered/Not Resolved]
  - Visual acuity reduced [Unknown]
  - Metastases to central nervous system [Unknown]
  - Tremor [Unknown]
  - Thirst [Unknown]
  - Constipation [Unknown]
  - Dyspnoea [Unknown]
  - Dizziness [Unknown]
  - Brain neoplasm [Unknown]
  - Fatigue [Recovering/Resolving]
  - Asthenia [Unknown]
  - Nausea [Unknown]
  - Dyspnoea exertional [Unknown]
  - Decreased appetite [Unknown]
  - Lethargy [Unknown]
  - Pain in extremity [Unknown]
